FAERS Safety Report 7295383-1 (Version None)
Quarter: 2011Q1

REPORT INFORMATION
  Report Type: 
  Country: None (occurrence: None)
  Receive Date: 20110216
  Receipt Date: 20110112
  Transmission Date: 20110831
  Serious: No
  Sender: FDA-Public Use
  Company Number: US-ABBOTT-11P-163-0697514-00

PATIENT
  Sex: Male
  Weight: 124.85 kg

DRUGS (3)
  1. METOPROLOL [Concomitant]
     Indication: HYPERTENSION
     Dosage: UNKNOWN
  2. INSULIN [Concomitant]
     Indication: DIABETES MELLITUS
     Dosage: UNKNOWN
  3. SIMCOR [Suspect]
     Indication: BLOOD CHOLESTEROL
     Dates: start: 20101201

REACTIONS (1)
  - SKIN BURNING SENSATION [None]
